FAERS Safety Report 23795090 (Version 2)
Quarter: 2024Q2

REPORT INFORMATION
  Report Type: Other
  Country: US (occurrence: US)
  Receive Date: 20240429
  Receipt Date: 20240520
  Transmission Date: 20240716
  Serious: No
  Sender: FDA-Public Use
  Company Number: US-TRAVERE-2024TVT00313

PATIENT
  Sex: Female

DRUGS (18)
  1. FILSPARI [Suspect]
     Active Substance: SPARSENTAN
     Indication: Illness
     Route: 048
     Dates: start: 20240307
  2. FILSPARI [Suspect]
     Active Substance: SPARSENTAN
     Indication: IgA nephropathy
  3. TERAZOSIN HYDROCHLORIDE [Concomitant]
     Active Substance: TERAZOSIN HYDROCHLORIDE
  4. FISH OIL [Concomitant]
     Active Substance: FISH OIL
  5. DOCUSATE SODIUM [Concomitant]
     Active Substance: DOCUSATE SODIUM
  6. CARVEDILOL [Concomitant]
     Active Substance: CARVEDILOL
  7. MYFORTIC [Concomitant]
     Active Substance: MYCOPHENOLATE SODIUM
  8. SIMVASTATIN [Concomitant]
     Active Substance: SIMVASTATIN
  9. OMEPRAZOLE [Concomitant]
     Active Substance: DONEPEZIL HYDROCHLORIDE\OMEPRAZOLE\OMEPRAZOLE MAGNESIUM
  10. VITAMINS [Concomitant]
     Active Substance: VITAMINS
  11. LOSARTAN POTASSIUM [Concomitant]
     Active Substance: LOSARTAN POTASSIUM
  12. HYDRALAZINE HCL [Concomitant]
     Active Substance: HYDRALAZINE HYDROCHLORIDE
  13. FUROSEMIDE [Concomitant]
     Active Substance: FUROSEMIDE
  14. ASPIRIN [Concomitant]
     Active Substance: ASPIRIN
  15. ALLOPURINOL [Concomitant]
     Active Substance: ALLOPURINOL
  16. TACROLIMUS [Concomitant]
     Active Substance: TACROLIMUS
  17. CYCLOSPORINE [Concomitant]
     Active Substance: CYCLOSPORINE
  18. PREDNISONE [Concomitant]
     Active Substance: PREDNISONE

REACTIONS (4)
  - Adverse drug reaction [Unknown]
  - Contraindicated product prescribed [Unknown]
  - Hypotension [Unknown]
  - Malaise [Unknown]
